FAERS Safety Report 6956024-3 (Version None)
Quarter: 2010Q3

REPORT INFORMATION
  Report Type: 
  Country: None (occurrence: None)
  Receive Date: 20100826
  Receipt Date: 20100817
  Transmission Date: 20110219
  Serious: Yes (Hospitalization, Other)
  Sender: FDA-Public Use
  Company Number: 673928

PATIENT
  Age: 6 Day
  Sex: 0

DRUGS (3)
  1. (PAMIDRONIC ACID) [Suspect]
     Indication: OSTEOGENESIS IMPERFECTA
     Dosage: .25 MG/KG MILLIGRAM(S)/KILOGRAM, INTRAVENOUS
     Route: 042
     Dates: start: 20100718, end: 20100718
  2. CEFOTAXIME SODIUM [Concomitant]
  3. (PENICILLIN  /00000903/) [Concomitant]

REACTIONS (1)
  - INAPPROPRIATE ANTIDIURETIC HORMONE SECRETION [None]
